FAERS Safety Report 5878550-0 (Version None)
Quarter: 2008Q3

REPORT INFORMATION
  Report Type: 
  Country: None (occurrence: None)
  Receive Date: 20080909
  Receipt Date: 20080825
  Transmission Date: 20090109
  Serious: Yes (Hospitalization)
  Sender: FDA-Public Use
  Company Number: 1000000810

PATIENT
  Age: 57 Year
  Sex: Female

DRUGS (6)
  1. ESCITALOPRAM OXALATE [Suspect]
     Dosage: 10 MG (10 MG, 1 IN 1  D), ORAL
     Route: 048
  2. BUSCOPAN [Concomitant]
  3. CLONAZEPAM [Concomitant]
  4. LORAZEPAM [Concomitant]
  5. TYLENOL WITH CODEINE NO 3 (TABLETS) [Concomitant]
  6. ZOPICLONE (TABLETS) [Concomitant]

REACTIONS (5)
  - ASTHENIA [None]
  - DYSKINESIA [None]
  - FEELING JITTERY [None]
  - MUSCLE SPASTICITY [None]
  - TREMOR [None]
